FAERS Safety Report 6726996-0 (Version None)
Quarter: 2010Q2

REPORT INFORMATION
  Report Type: 
  Country: None (occurrence: None)
  Receive Date: 20100517
  Receipt Date: 20100513
  Transmission Date: 20101027
  Serious: No
  Sender: FDA-Public Use
  Company Number: US-BIOGENIDEC-2010BI015936

PATIENT
  Age: 53 Year
  Sex: Female

DRUGS (3)
  1. AVONEX [Suspect]
     Indication: MULTIPLE SCLEROSIS
     Route: 030
     Dates: start: 19960901, end: 19990101
  2. AVONEX [Suspect]
     Route: 030
     Dates: start: 19990101, end: 20030101
  3. AVONEX [Suspect]
     Route: 030
     Dates: start: 20030101

REACTIONS (4)
  - ARTHROPATHY [None]
  - BALANCE DISORDER [None]
  - TOOTHACHE [None]
  - WRIST FRACTURE [None]
